FAERS Safety Report 6633728-3 (Version None)
Quarter: 2010Q1

REPORT INFORMATION
  Report Type: 
  Country: None (occurrence: None)
  Receive Date: 20100315
  Receipt Date: 20100305
  Transmission Date: 20100710
  Serious: Yes (Death, Hospitalization)
  Sender: FDA-Public Use
  Company Number: US-BIOGENIDEC-2007BI015988

PATIENT
  Sex: Male

DRUGS (4)
  1. AVONEX [Suspect]
     Indication: MULTIPLE SCLEROSIS
     Route: 030
     Dates: start: 19990701, end: 20030101
  2. AVONEX [Suspect]
     Route: 030
     Dates: start: 20030101, end: 20050101
  3. AVONEX [Suspect]
     Route: 030
     Dates: start: 20050101, end: 20080530
  4. AVONEX [Suspect]
     Route: 030
     Dates: start: 20090205, end: 20090401

REACTIONS (7)
  - DEATH [None]
  - FALL [None]
  - GASTROINTESTINAL DISORDER POSTOPERATIVE [None]
  - NERVE COMPRESSION [None]
  - NON-SMALL CELL LUNG CANCER [None]
  - PANCREATIC CARCINOMA [None]
  - PANCREATIC LEAK [None]
